FAERS Safety Report 13780123 (Version 2)
Quarter: 2017Q3

REPORT INFORMATION
  Report Type: Spontaneous
  Country: US (occurrence: US)
  Receive Date: 20170724
  Receipt Date: 20170727
  Transmission Date: 20171127
  Serious: No
  Sender: FDA-Public Use
  Company Number: US-009507513-1707USA008961

PATIENT
  Age: 20 Year
  Sex: Female
  Weight: 52.15 kg

DRUGS (1)
  1. NEXPLANON [Suspect]
     Active Substance: ETONOGESTREL
     Indication: CONTRACEPTION
     Dosage: 3 YEARS
     Route: 059
     Dates: start: 20150415

REACTIONS (6)
  - Headache [Unknown]
  - Vaginal haemorrhage [Unknown]
  - Breast pain [Unknown]
  - Renal pain [Unknown]
  - Muscle spasms [Unknown]
  - Breast mass [Unknown]

NARRATIVE: CASE EVENT DATE: 2015
